FAERS Safety Report 18104698 (Version 4)
Quarter: 2020Q4

REPORT INFORMATION
  Report Type: Report from Study
  Country: None (occurrence: US)
  Receive Date: 20200804
  Receipt Date: 20201105
  Transmission Date: 20210113
  Serious: Yes (Other)
  Sender: FDA-Public Use
  Company Number: US-ABBVIE-20K-163-3505690-00

PATIENT
  Sex: Female

DRUGS (2)
  1. HUMIRA [Suspect]
     Active Substance: ADALIMUMAB
     Indication: PSORIATIC ARTHROPATHY
     Dosage: CITRATE FREE
     Route: 058
  2. HUMIRA [Suspect]
     Active Substance: ADALIMUMAB
     Indication: ANKYLOSING SPONDYLITIS
     Dosage: CITRATE FREE
     Route: 058

REACTIONS (36)
  - Gallbladder polyp [Not Recovered/Not Resolved]
  - Ampullary polyp [Not Recovered/Not Resolved]
  - Pancreatitis chronic [Not Recovered/Not Resolved]
  - Therapeutic response shortened [Recovered/Resolved with Sequelae]
  - C-reactive protein increased [Not Recovered/Not Resolved]
  - Red blood cell sedimentation rate increased [Not Recovered/Not Resolved]
  - Joint stiffness [Recovering/Resolving]
  - Spondylitis [Not Recovered/Not Resolved]
  - Musculoskeletal stiffness [Recovered/Resolved]
  - Back pain [Not Recovered/Not Resolved]
  - Cholecystitis chronic [Unknown]
  - Hiatus hernia [Not Recovered/Not Resolved]
  - Gastrooesophageal reflux disease [Not Recovered/Not Resolved]
  - Condition aggravated [Recovered/Resolved with Sequelae]
  - Spinal stenosis [Unknown]
  - Hypotension [Recovering/Resolving]
  - Contusion [Unknown]
  - Injection site urticaria [Recovering/Resolving]
  - Sinusitis [Recovered/Resolved]
  - Pulmonary mass [Not Recovered/Not Resolved]
  - Musculoskeletal stiffness [Recovering/Resolving]
  - Intervertebral disc space narrowing [Unknown]
  - Post procedural complication [Recovering/Resolving]
  - Heart rate decreased [Recovering/Resolving]
  - Protein total increased [Recovering/Resolving]
  - Hypoaesthesia [Recovering/Resolving]
  - Pain in extremity [Recovering/Resolving]
  - Antiphospholipid syndrome [Not Recovered/Not Resolved]
  - Exostosis [Unknown]
  - Chronic spontaneous urticaria [Recovering/Resolving]
  - Dry skin [Not Recovered/Not Resolved]
  - Mobility decreased [Recovering/Resolving]
  - Fibromyalgia [Recovering/Resolving]
  - Arthralgia [Recovering/Resolving]
  - Pain [Unknown]
  - Paraesthesia [Recovering/Resolving]
